FAERS Safety Report 8966478 (Version 1)
Quarter: 2012Q4

REPORT INFORMATION
  Report Type: Report from Study
  Country: DE (occurrence: DE)
  Receive Date: 20121216
  Receipt Date: 20121216
  Transmission Date: 20130627
  Serious: Yes (Hospitalization)
  Sender: FDA-Public Use
  Company Number: DE-UCBSA-072992

PATIENT
  Sex: Female

DRUGS (5)
  1. VIMPAT [Suspect]
     Indication: PARTIAL SEIZURES
     Dosage: DAILY DOSE: 50 MG
     Dates: start: 20101125
  2. VIMPAT [Suspect]
     Indication: PARTIAL SEIZURES
     Dosage: DAILY DOSE: 300 MG
     Dates: end: 20110220
  3. OXCARBAZEPINE [Concomitant]
     Indication: EPILEPSY
     Dosage: DAILY DOSE: 600 MG
  4. OXCARBAZEPINE [Concomitant]
     Indication: EPILEPSY
     Dosage: DAILY DOSE: 300 MG
  5. LEVETIRACETAM [Concomitant]
     Indication: EPILEPSY
     Dosage: DAILY DOSE: 3000 MG

REACTIONS (2)
  - Epilepsy [Unknown]
  - Drug ineffective [Recovered/Resolved]
